FAERS Safety Report 19705677 (Version 3)
Quarter: 2021Q3

REPORT INFORMATION
  Report Type: Report from Study
  Country: None (occurrence: US)
  Receive Date: 20210817
  Receipt Date: 20210827
  Transmission Date: 20211014
  Serious: Yes (Hospitalization, Other)
  Sender: FDA-Public Use
  Company Number: US-ABBVIE-21K-163-4037411-00

PATIENT
  Age: 33 Year
  Sex: Female
  Weight: 74.91 kg

DRUGS (8)
  1. MODERNA COVID?19 VACCINE [Concomitant]
     Active Substance: CX-024414
     Indication: COVID-19 IMMUNISATION
     Dosage: MODERNA
     Route: 030
     Dates: start: 20210315, end: 20210315
  2. MODERNA COVID?19 VACCINE [Concomitant]
     Active Substance: CX-024414
     Dosage: MODERNA
     Route: 030
     Dates: start: 20210412, end: 20210412
  3. HYDROCODONE [Concomitant]
     Active Substance: HYDROCODONE
     Indication: ARTHRALGIA
  4. RINVOQ [Suspect]
     Active Substance: UPADACITINIB
     Route: 048
     Dates: start: 202103, end: 202104
  5. RINVOQ [Suspect]
     Active Substance: UPADACITINIB
     Route: 048
     Dates: start: 202104, end: 20210731
  6. RINVOQ [Suspect]
     Active Substance: UPADACITINIB
     Indication: RHEUMATOID ARTHRITIS
     Route: 048
     Dates: start: 202003, end: 202003
  7. XOLAIR [Concomitant]
     Active Substance: OMALIZUMAB
     Indication: HEREDITARY DISORDER
  8. SPIRONOLACTONE. [Concomitant]
     Active Substance: SPIRONOLACTONE
     Indication: HORMONE THERAPY

REACTIONS (19)
  - COVID-19 [Recovered/Resolved]
  - Pneumonia [Not Recovered/Not Resolved]
  - Endocarditis [Not Recovered/Not Resolved]
  - Psoriasis [Unknown]
  - Oxygen saturation abnormal [Recovering/Resolving]
  - Electrocardiogram abnormal [Not Recovered/Not Resolved]
  - Prothrombin time prolonged [Recovered/Resolved]
  - Throat irritation [Recovered/Resolved]
  - Arrhythmia [Not Recovered/Not Resolved]
  - Aphonia [Not Recovered/Not Resolved]
  - Red blood cell count abnormal [Unknown]
  - Myocarditis [Recovered/Resolved]
  - Dehydration [Unknown]
  - Cardiomegaly [Not Recovered/Not Resolved]
  - Tachyarrhythmia [Not Recovered/Not Resolved]
  - Psoriasis [Recovered/Resolved]
  - Lymphocyte count decreased [Recovered/Resolved]
  - C-reactive protein increased [Unknown]
  - Rheumatoid arthritis [Not Recovered/Not Resolved]

NARRATIVE: CASE EVENT DATE: 2021
